FAERS Safety Report 11524263 (Version 1)
Quarter: 2015Q3

REPORT INFORMATION
  Report Type: Spontaneous
  Country: US (occurrence: US)
  Receive Date: 20150918
  Receipt Date: 20150918
  Transmission Date: 20151125
  Serious: No
  Sender: FDA-Public Use
  Company Number: US-TARO-2015TAR00386

PATIENT
  Age: 35 Year
  Sex: Female
  Weight: 68.27 kg

DRUGS (3)
  1. MALATHION LOTION USP 0.5% [Suspect]
     Active Substance: MALATHION
     Indication: LICE INFESTATION
     Dosage: 1 UNK, UNK
     Route: 061
     Dates: start: 20150425, end: 20150425
  2. LINZESS [Concomitant]
     Active Substance: LINACLOTIDE
     Dosage: 290 MG, 1X/DAY
  3. XANAX [Concomitant]
     Active Substance: ALPRAZOLAM
     Dosage: 1 MG, 1X/DAY

REACTIONS (5)
  - Dysgeusia [Recovered/Resolved]
  - Dyspnoea [Recovered/Resolved]
  - Nausea [Recovered/Resolved]
  - Decreased appetite [Recovered/Resolved]
  - Non-cardiac chest pain [Recovered/Resolved]

NARRATIVE: CASE EVENT DATE: 20150425
